FAERS Safety Report 7838855-0 (Version None)
Quarter: 2011Q4

REPORT INFORMATION
  Report Type: 
  Country: None (occurrence: None)
  Receive Date: 20111024
  Receipt Date: 20111013
  Transmission Date: 20120403
  Serious: Yes (Other)
  Sender: FDA-Public Use
  Company Number: US-US-EMD SERONO, INC.-7088390

PATIENT
  Sex: Female
  Weight: 93 kg

DRUGS (7)
  1. DILAUDID [Concomitant]
     Indication: BACK PAIN
  2. METOPROLOL TARTRATE [Concomitant]
     Indication: HYPERTENSION
  3. EXALGO ER [Concomitant]
     Indication: BACK PAIN
  4. REBIF [Suspect]
     Indication: PRODUCT USED FOR UNKNOWN INDICATION
     Route: 058
     Dates: start: 20110329
  5. SUCCER [Concomitant]
     Indication: HYPERTENSION
  6. HYDROCHLOROTHIAZIDE [Concomitant]
     Indication: HYPERTENSION
  7. SYNTHROID [Concomitant]
     Indication: HYPOTHYROIDISM

REACTIONS (7)
  - INJECTION SITE REACTION [None]
  - MUSCULAR WEAKNESS [None]
  - DEPRESSION [None]
  - HEADACHE [None]
  - CATARACT OPERATION [None]
  - NEURALGIA [None]
  - INJECTION SITE SCAR [None]
